FAERS Safety Report 5452983-9 (Version None)
Quarter: 2007Q3

REPORT INFORMATION
  Report Type: 
  Country: None (occurrence: None)
  Receive Date: 20070914
  Receipt Date: 20070905
  Transmission Date: 20080115
  Serious: Yes (Hospitalization)
  Sender: FDA-Public Use
  Company Number: BE-SHR-BE-2007-026087

PATIENT
  Age: 37 Year
  Sex: Female

DRUGS (2)
  1. BETAFERON [Suspect]
     Indication: MULTIPLE SCLEROSIS
     Dosage: 4 MIU, EVERY 2D
     Route: 058
     Dates: start: 20070606, end: 20070706
  2. BETAFERON [Suspect]
     Dosage: 6 MIU, EVERY 2D
     Route: 058
     Dates: start: 20070708

REACTIONS (5)
  - DIZZINESS [None]
  - EPILEPSY [None]
  - GALLBLADDER OPERATION [None]
  - HYPOTENSION [None]
  - LOSS OF CONSCIOUSNESS [None]
